FAERS Safety Report 18737410 (Version 1)
Quarter: 2021Q1

REPORT INFORMATION
  Report Type: Spontaneous
  Country: US (occurrence: US)
  Receive Date: 20210113
  Receipt Date: 20210113
  Transmission Date: 20210419
  Serious: Yes (Hospitalization, Other)
  Sender: FDA-Public Use
  Company Number: US-TEVA-2021-US-1867434

PATIENT
  Age: 38 Year
  Sex: Female

DRUGS (2)
  1. CLONIDINE. [Suspect]
     Active Substance: CLONIDINE
     Indication: DRUG DEPENDENCE
     Route: 065
  2. NALOXONE [Suspect]
     Active Substance: NALOXONE
     Indication: TOXICITY TO VARIOUS AGENTS
     Route: 042

REACTIONS (12)
  - Hypertension [Unknown]
  - Mental status changes [Unknown]
  - Intentional overdose [Unknown]
  - Hypotension [Unknown]
  - Hypothermia [Unknown]
  - Drug ineffective [Unknown]
  - Bradycardia [Unknown]
  - Somnolence [Unknown]
  - Miosis [Unknown]
  - Confusional state [Unknown]
  - Off label use [Unknown]
  - Sinus bradycardia [Unknown]
